FAERS Safety Report 4943625-7 (Version None)
Quarter: 2006Q1

REPORT INFORMATION
  Report Type: 
  Country: None (occurrence: None)
  Receive Date: 20060310
  Receipt Date: 20060228
  Transmission Date: 20060701
  Serious: Yes (Other)
  Sender: FDA-Public Use
  Company Number: B0414730A

PATIENT
  Age: 47 Year
  Sex: Male

DRUGS (1)
  1. VENTOLIN [Suspect]
     Dosage: NINE TIMES PER DAY/ INHALE
     Route: 055

REACTIONS (5)
  - ABNORMAL BEHAVIOUR [None]
  - AGGRESSION [None]
  - ATTENTION DEFICIT/HYPERACTIVITY DISORDER [None]
  - DRUG ABUSER [None]
  - INAPPROPRIATE SCHEDULE OF DRUG ADMINISTRATION [None]
